FAERS Safety Report 22204628 (Version 3)
Quarter: 2023Q2

REPORT INFORMATION
  Report Type: Report from Study
  Country: US (occurrence: US)
  Receive Date: 20230413
  Receipt Date: 20230503
  Transmission Date: 20230722
  Serious: Yes (Hospitalization)
  Sender: FDA-Public Use
  Company Number: US-GBT-021596

PATIENT
  Age: 24 Year
  Sex: Male

DRUGS (12)
  1. OXBRYTA [Suspect]
     Active Substance: VOXELOTOR
     Indication: Sickle cell disease
     Dates: start: 20220408
  2. OXBRYTA [Suspect]
     Active Substance: VOXELOTOR
     Indication: Sickle cell disease
     Route: 048
     Dates: start: 20230407, end: 20230413
  3. crizanlizumab-tmca (Adakveo) in NaCl 0.9% 100 mL infusion [Concomitant]
     Indication: Sickle cell disease
     Dosage: 5MG/KG
     Route: 042
     Dates: start: 20211217
  4. oxycodone IR (roxicodone) 15 mg immediate release tablet [Concomitant]
     Indication: Sickle cell disease
     Dosage: AS NECESSARY
     Route: 048
     Dates: start: 20200923
  5. morphine (MS CONTIN) 60 mg 12 extended release tablet [Concomitant]
     Indication: Sickle cell disease
     Route: 048
     Dates: start: 20220531
  6. ibuprofen (motrin) 600 mg tablet [Concomitant]
     Indication: Sickle cell disease
     Dosage: AS NECESSARY
     Route: 048
     Dates: start: 20200402
  7. amoxicillin (Amoxil) 250 mg capsule [Concomitant]
     Indication: Prophylaxis
     Route: 048
     Dates: start: 20190322
  8. lidocaine (aspercreme) 4% transdermal patch [Concomitant]
     Indication: Sickle cell disease
     Dosage: 1 PATCH
     Route: 062
     Dates: start: 20220821
  9. gabapentin (neurontin) 600 mg tablet [Concomitant]
     Indication: Sickle cell disease
     Route: 048
     Dates: start: 20220809
  10. cholecalciferol (vitamin D3) 25 mcg (1,000 unit) tablet [Concomitant]
     Indication: Product used for unknown indication
     Dosage: 2 TABLETS
     Route: 048
     Dates: start: 20220708
  11. hydroxyurea (hydrea) 500 mg capsule [Concomitant]
     Indication: Sickle cell disease
     Dosage: ALTERNATE 1500/2000MG
     Route: 048
     Dates: start: 20170719
  12. acetaminophen (Tylenol) tablet [Concomitant]
     Indication: Sickle cell disease
     Dosage: ONCE AT ADAKVEO INFUSION
     Route: 048
     Dates: start: 20211217

REACTIONS (2)
  - Acute chest syndrome [Recovered/Resolved]
  - Sickle cell anaemia with crisis [Recovered/Resolved]

NARRATIVE: CASE EVENT DATE: 20230405
